FAERS Safety Report 7813849-X (Version None)
Quarter: 2011Q4

REPORT INFORMATION
  Report Type: 
  Country: None (occurrence: None)
  Receive Date: 20111011
  Receipt Date: 20111003
  Transmission Date: 20120403
  Serious: Yes (Other)
  Sender: FDA-Public Use
  Company Number: 2011SP015302

PATIENT
  Age: 31 Year
  Sex: Female
  Weight: 80.2867 kg

DRUGS (1)
  1. IMPLANON [Suspect]
     Indication: PRODUCT USED FOR UNKNOWN INDICATION
     Dosage: SUBD
     Route: 059
     Dates: start: 20100622, end: 20110404

REACTIONS (3)
  - RECTAL HAEMORRHAGE [None]
  - COLITIS [None]
  - MENSTRUATION IRREGULAR [None]
